FAERS Safety Report 25649210 (Version 2)
Quarter: 2025Q4

REPORT INFORMATION
  Report Type: Spontaneous
  Country: US (occurrence: US)
  Receive Date: 20250806
  Receipt Date: 20251106
  Transmission Date: 20260117
  Serious: Yes (Other)
  Sender: BAYER HEALTHCARE PHARMACEUTICALS INC.
  Company Number: US-BAYER-2025A102187

PATIENT
  Sex: Male

DRUGS (3)
  1. KOVALTRY [Suspect]
     Active Substance: ANTIHEMOPHILIC FACTOR, HUMAN RECOMBINANT
     Indication: Factor VIII deficiency
     Dosage: KOVALTRY 3000 IU: INFUSE~ 3000 U PRN SLOW IV PUSH
     Route: 042
     Dates: start: 202309
  2. KOVALTRY [Suspect]
     Active Substance: ANTIHEMOPHILIC FACTOR, HUMAN RECOMBINANT
     Indication: Factor VIII deficiency
     Dosage: KOVALTRY 500 IU: INFUSE~ 725 U PRN SLOW IV PUSH
     Route: 042
     Dates: start: 202309
  3. HEMLIBRA [Concomitant]
     Active Substance: EMICIZUMAB-KXWH
     Dosage: UNK

REACTIONS (2)
  - Epistaxis [Not Recovered/Not Resolved]
  - Nasopharyngitis [None]
